FAERS Safety Report 9740268 (Version 1)
Quarter: 2013Q4

REPORT INFORMATION
  Report Type: Spontaneous
  Country: US (occurrence: US)
  Receive Date: 20131209
  Receipt Date: 20131209
  Transmission Date: 20140711
  Serious: No
  Sender: FDA-Public Use
  Company Number: US-BIOGENIDEC-2013BI093573

PATIENT
  Age: 52 Year
  Sex: Female

DRUGS (4)
  1. TECFIDERA [Suspect]
     Indication: MULTIPLE SCLEROSIS
     Dates: start: 20130913
  2. TECFIDERA [Suspect]
     Indication: MULTIPLE SCLEROSIS
     Dates: start: 20130916
  3. TECFIDERA [Suspect]
     Indication: MULTIPLE SCLEROSIS
  4. TECFIDERA [Suspect]
     Indication: MULTIPLE SCLEROSIS
     Dates: end: 20131008

REACTIONS (14)
  - Flatulence [Recovered/Resolved]
  - Vulvovaginal burning sensation [Recovered/Resolved]
  - Salivary hypersecretion [Not Recovered/Not Resolved]
  - Constipation [Recovered/Resolved]
  - Underdose [Unknown]
  - Fatigue [Unknown]
  - Mobility decreased [Unknown]
  - Nausea [Not Recovered/Not Resolved]
  - Vomiting [Recovered/Resolved]
  - Dyspepsia [Recovered/Resolved]
  - Abdominal discomfort [Not Recovered/Not Resolved]
  - Flushing [Recovered/Resolved]
  - Diarrhoea [Recovered/Resolved]
  - Abdominal pain upper [Recovered/Resolved]
